FAERS Safety Report 4751874-6 (Version None)
Quarter: 2005Q3

REPORT INFORMATION
  Report Type: 
  Country: None (occurrence: None)
  Receive Date: 20050822
  Receipt Date: 20050504
  Transmission Date: 20060218
  Serious: No
  Sender: FDA-Public Use
  Company Number: PHEH2005US05137

PATIENT
  Age: 61 Year
  Sex: Female

DRUGS (3)
  1. ZELNORM [Suspect]
     Indication: IMPAIRED GASTRIC EMPTYING
     Dosage: 6 MG, QD, ORAL
     Route: 048
     Dates: start: 20050502
  2. ZOLOFT [Concomitant]
  3. TRAZODONE (TRAZODONE) [Concomitant]

REACTIONS (3)
  - ANXIETY [None]
  - HEADACHE [None]
  - INSOMNIA [None]
